FAERS Safety Report 5209983-3 (Version None)
Quarter: 2006Q4

REPORT INFORMATION
  Report Type: 
  Country: None (occurrence: None)
  Receive Date: 20061128
  Receipt Date: 20051125
  Transmission Date: 20070319
  Serious: Yes (Other)
  Sender: FDA-Public Use
  Company Number: 2005134713

PATIENT
  Age: 56 Year
  Sex: Female

DRUGS (5)
  1. TIKOSYN [Suspect]
     Indication: ATRIAL FIBRILLATION
     Dosage: 1000 MCG (500 MCG 2 IN 1 D), ORAL
     Route: 048
     Dates: start: 20050308
  2. LUNESTA [Suspect]
     Indication: INSOMNIA
     Dosage: 2 MG (2 MG, AS NEEDED), ORAL
     Route: 048
     Dates: start: 20050920, end: 20050926
  3. PREMPRO [Concomitant]
  4. ASPIRIN [Concomitant]
  5. AMBIEN [Concomitant]

REACTIONS (8)
  - ELECTROCARDIOGRAM QT PROLONGED [None]
  - FATIGUE [None]
  - HUNGER [None]
  - HYPOAESTHESIA [None]
  - INSOMNIA [None]
  - MUSCULAR WEAKNESS [None]
  - PARAESTHESIA [None]
  - THIRST [None]
